FAERS Safety Report 25008506 (Version 1)
Quarter: 2025Q1

REPORT INFORMATION
  Report Type: Spontaneous
  Country: US (occurrence: US)
  Receive Date: 20250225
  Receipt Date: 20250225
  Transmission Date: 20250409
  Serious: Yes (Other)
  Sender: BAYER HEALTHCARE LLC
  Company Number: US-BAYER-2025A023122

PATIENT

DRUGS (1)
  1. AFRIN NO DRIP ORIGINAL PUMP MIST [Suspect]
     Active Substance: OXYMETAZOLINE HYDROCHLORIDE
     Dosage: UNK UNK, QD

REACTIONS (4)
  - Drug dependence [Not Recovered/Not Resolved]
  - Dyspnoea [None]
  - Nasal septum deviation [None]
  - Incorrect product administration duration [None]
